FAERS Safety Report 4613171-9 (Version None)
Quarter: 2005Q1

REPORT INFORMATION
  Report Type: 
  Country: None (occurrence: None)
  Receive Date: 20050316
  Receipt Date: 20050228
  Transmission Date: 20050727
  Serious: Yes (Other)
  Sender: FDA-Public Use
  Company Number: USA050391976

PATIENT
  Age: 55 Year
  Sex: Female

DRUGS (8)
  1. INSULIN [Suspect]
     Indication: DIABETES MELLITUS
     Dates: start: 19670101
  2. HUMULIN N [Suspect]
     Indication: DIABETES MELLITUS
     Dates: start: 19670101
  3. HUMALOG [Suspect]
     Indication: DIABETES MELLITUS
     Dates: start: 19980101
  4. LANTUS [Concomitant]
  5. CARDIZEM [Concomitant]
  6. LISINOPRIL (LINSINOPRIL) [Concomitant]
  7. PRENATAL VITAMINS [Concomitant]
  8. PRENATAL VITAMINS [Concomitant]

REACTIONS (8)
  - ABORTION SPONTANEOUS [None]
  - CATARACT [None]
  - DRUG EXPOSURE DURING PREGNANCY [None]
  - EYE HAEMORRHAGE [None]
  - HYPERTENSION [None]
  - PHARMACEUTICAL PRODUCT COMPLAINT [None]
  - RETINOPATHY [None]
  - VISUAL ACUITY REDUCED [None]
